FAERS Safety Report 5945189-8 (Version None)
Quarter: 2008Q4

REPORT INFORMATION
  Report Type: 
  Country: None (occurrence: None)
  Receive Date: 20081107
  Receipt Date: 20081031
  Transmission Date: 20090506
  Serious: Yes (Other)
  Sender: FDA-Public Use
  Company Number: B0545009A

PATIENT
  Age: 38 Year
  Sex: Male

DRUGS (5)
  1. KIVEXA [Suspect]
     Indication: HIV INFECTION
     Route: 065
     Dates: start: 20051201, end: 20051229
  2. TELZIR [Suspect]
     Indication: HIV INFECTION
     Route: 048
     Dates: start: 20051201, end: 20051229
  3. NORVIR [Suspect]
     Indication: HIV INFECTION
     Route: 048
     Dates: start: 20051201, end: 20051229
  4. VIREAD [Concomitant]
     Route: 048
  5. EMTRIVA [Concomitant]
     Route: 048

REACTIONS (2)
  - MITOCHONDRIAL CYTOPATHY [None]
  - MYOSITIS [None]
